FAERS Safety Report 24665719 (Version 1)
Quarter: 2024Q4

REPORT INFORMATION
  Report Type: Spontaneous
  Country: US (occurrence: US)
  Receive Date: 20241126
  Receipt Date: 20241126
  Transmission Date: 20250114
  Serious: No
  Sender: PFIZER
  Company Number: US-BRISTOL-MYERS SQUIBB COMPANY-2024-173090

PATIENT
  Age: 76 Year
  Sex: Female
  Weight: 72.6 kg

DRUGS (19)
  1. ELIQUIS [Suspect]
     Active Substance: APIXABAN
  2. METOPROLOL TARTRATE [Suspect]
     Active Substance: METOPROLOL TARTRATE
  3. HYDREA [Suspect]
     Active Substance: HYDROXYUREA
     Indication: Platelet disorder
  4. TRIAMCINOLONE ACETONIDE [Suspect]
     Active Substance: TRIAMCINOLONE ACETONIDE
  5. TYVASO [Suspect]
     Active Substance: TREPROSTINIL
     Indication: Pulmonary arterial hypertension
     Dosage: 54 UG, 4X/DAY
     Route: 055
     Dates: start: 20230116
  6. HYDROXYZINE HYDROCHLORIDE [Concomitant]
     Active Substance: HYDROXYZINE HYDROCHLORIDE
  7. POTASSIUM CHLORIDE [Concomitant]
     Active Substance: POTASSIUM CHLORIDE
  8. ROSUVASTATIN CALCIUM [Concomitant]
     Active Substance: ROSUVASTATIN CALCIUM
  9. ALLOPURINOL [Concomitant]
     Active Substance: ALLOPURINOL
  10. DIETARY SUPPLEMENT [Concomitant]
     Active Substance: DIETARY SUPPLEMENT
  11. COENZYME Q10 [Concomitant]
     Active Substance: DIETARY SUPPLEMENT\UBIDECARENONE
  12. SILDENAFIL CITRATE [Concomitant]
     Active Substance: SILDENAFIL CITRATE
  13. VITAMIN D3 [Concomitant]
     Active Substance: CHOLECALCIFEROL
  14. OPSUMIT [Concomitant]
     Active Substance: MACITENTAN
  15. MAGNESIUM [Concomitant]
     Active Substance: MAGNESIUM
  16. IRON [Concomitant]
     Active Substance: IRON
  17. BUMETANIDE [Concomitant]
     Active Substance: BUMETANIDE
  18. OMEPRAZOLE [Concomitant]
     Active Substance: OMEPRAZOLE
  19. VITAMIN C [Concomitant]
     Active Substance: ASCORBIC ACID

REACTIONS (7)
  - Constipation [Unknown]
  - Hypotension [Unknown]
  - Heart rate increased [Unknown]
  - Blood iron decreased [Unknown]
  - Skin ulcer [Unknown]
  - Feeling cold [Unknown]
  - Fatigue [Unknown]
